FAERS Safety Report 4776949-7 (Version None)
Quarter: 2005Q3

REPORT INFORMATION
  Report Type: 
  Country: None (occurrence: None)
  Receive Date: 20050914
  Receipt Date: 20040723
  Transmission Date: 20060218
  Serious: Yes (Other)
  Sender: FDA-Public Use
  Company Number: 163-20785-04070648

PATIENT
  Age: 44 Year
  Sex: Male

DRUGS (2)
  1. THALOMID [Suspect]
     Indication: MULTIPLE MYELOMA
     Dosage: 250 MG, DAILY OFF AND ON, ORAL
     Route: 048
     Dates: start: 20020101, end: 20031101
  2. DECADRON [Concomitant]

REACTIONS (3)
  - NEUROPATHY PERIPHERAL [None]
  - PANCYTOPENIA [None]
  - PNEUMONIA [None]
